FAERS Safety Report 4352449-3 (Version None)
Quarter: 2004Q2

REPORT INFORMATION
  Report Type: 
  Country: None (occurrence: None)
  Receive Date: 20040409
  Receipt Date: 20040210
  Transmission Date: 20050107
  Serious: No
  Sender: FDA-Public Use
  Company Number: PHEH2004US01833

PATIENT
  Age: 78 Year
  Sex: Female
  Weight: 51.7 kg

DRUGS (7)
  1. ELIDEL [Suspect]
     Indication: PSORIASIS
     Dosage: BID, TOPICAL
     Route: 061
     Dates: start: 20030220, end: 20030701
  2. ADVAIR (SALMETEROL XINOFOATE) [Concomitant]
  3. SINGULAIR (MONTELKAST SODIUM) [Concomitant]
  4. PREDNISONE [Concomitant]
  5. FOSAMAX [Concomitant]
  6. LOVENOX [Concomitant]
  7. L-THYROXIN [Concomitant]

REACTIONS (2)
  - DIZZINESS [None]
  - VERTIGO [None]
